FAERS Safety Report 9941006 (Version 1)
Quarter: 2014Q1

REPORT INFORMATION
  Report Type: Spontaneous
  Country: US (occurrence: US)
  Receive Date: 20140303
  Receipt Date: 20140303
  Transmission Date: 20141002
  Serious: Yes (Other)
  Sender: FDA-Public Use
  Company Number: US-TEVA-465660USA

PATIENT
  Age: 61 Year
  Sex: Male

DRUGS (4)
  1. PROAIR HFA [Suspect]
     Indication: ASTHMA
  2. ADVAIR [Suspect]
     Indication: ASTHMA
     Dosage: 500/50 MCG
     Route: 055
     Dates: start: 20131023
  3. VENTOLIN [Suspect]
     Indication: ASTHMA
     Dates: start: 20131023
  4. UNKNOWN [Suspect]
     Indication: PRODUCT USED FOR UNKNOWN INDICATION

REACTIONS (3)
  - Disability [Not Recovered/Not Resolved]
  - Ankle operation [Unknown]
  - Rehabilitation therapy [Unknown]
